FAERS Safety Report 9852693 (Version 1)
Quarter: 2014Q1

REPORT INFORMATION
  Report Type: Spontaneous
  Country: ES (occurrence: None)
  Receive Date: 20140127
  Receipt Date: 20140127
  Transmission Date: 20141002
  Serious: Yes (Hospitalization, Other)
  Sender: FDA-Public Use
  Company Number: DSM-2014-00026

PATIENT
  Sex: Female

DRUGS (1)
  1. OLMETEC PLUS [Suspect]
     Indication: CARDIAC FAILURE
     Route: 048
     Dates: start: 2013, end: 20130925

REACTIONS (3)
  - Cardiac failure [None]
  - Acute coronary syndrome [None]
  - Hyponatraemia [None]
